FAERS Safety Report 25441382 (Version 4)
Quarter: 2025Q4

REPORT INFORMATION
  Report Type: Spontaneous
  Country: EU (occurrence: EU)
  Receive Date: 20250616
  Receipt Date: 20251210
  Transmission Date: 20260118
  Serious: Yes (Hospitalization, Other)
  Sender: MYLAN
  Company Number: EU-JNJFOC-20250534103

PATIENT
  Age: 51 Year
  Sex: Female
  Weight: 68 kg

DRUGS (20)
  1. SILDENAFIL [Suspect]
     Active Substance: SILDENAFIL
     Indication: Pulmonary arterial hypertension
     Dosage: 20 MILLIGRAM, TID,(3X20 MG)
     Dates: start: 202201
  2. SILDENAFIL [Suspect]
     Active Substance: SILDENAFIL
     Dosage: 20 MILLIGRAM, TID,(3X20 MG)
     Route: 065
     Dates: start: 202201
  3. SILDENAFIL [Suspect]
     Active Substance: SILDENAFIL
     Dosage: 20 MILLIGRAM, TID,(3X20 MG)
     Route: 065
     Dates: start: 202201
  4. SILDENAFIL [Suspect]
     Active Substance: SILDENAFIL
     Dosage: 20 MILLIGRAM, TID,(3X20 MG)
     Dates: start: 202201
  5. VELETRI [Suspect]
     Active Substance: EPOPROSTENOL
     Indication: Pulmonary arterial hypertension
     Dosage: UNK
  6. VELETRI [Suspect]
     Active Substance: EPOPROSTENOL
     Dosage: UNK
     Route: 042
  7. VELETRI [Suspect]
     Active Substance: EPOPROSTENOL
     Dosage: UNK
     Route: 042
  8. VELETRI [Suspect]
     Active Substance: EPOPROSTENOL
     Dosage: UNK
  9. BOSENTAN [Suspect]
     Active Substance: BOSENTAN
     Indication: Pulmonary arterial hypertension
     Dosage: 125 MILLIGRAM, BID
     Dates: start: 202202, end: 202211
  10. BOSENTAN [Suspect]
     Active Substance: BOSENTAN
     Dosage: 125 MILLIGRAM, BID
     Route: 048
     Dates: start: 202202, end: 202211
  11. BOSENTAN [Suspect]
     Active Substance: BOSENTAN
     Dosage: 125 MILLIGRAM, BID
     Route: 048
     Dates: start: 202202, end: 202211
  12. BOSENTAN [Suspect]
     Active Substance: BOSENTAN
     Dosage: 125 MILLIGRAM, BID
     Dates: start: 202202, end: 202211
  13. OPSUMIT [Suspect]
     Active Substance: MACITENTAN
     Indication: Pulmonary arterial hypertension
     Dosage: UNK
  14. OPSUMIT [Suspect]
     Active Substance: MACITENTAN
     Dosage: UNK
     Route: 048
  15. OPSUMIT [Suspect]
     Active Substance: MACITENTAN
     Dosage: UNK
     Route: 048
  16. OPSUMIT [Suspect]
     Active Substance: MACITENTAN
     Dosage: UNK
  17. ILOPROST [Suspect]
     Active Substance: ILOPROST
     Indication: Pulmonary arterial hypertension
     Dosage: UNK
  18. ILOPROST [Suspect]
     Active Substance: ILOPROST
     Dosage: UNK
     Route: 055
  19. ILOPROST [Suspect]
     Active Substance: ILOPROST
     Dosage: UNK
     Route: 055
  20. ILOPROST [Suspect]
     Active Substance: ILOPROST
     Dosage: UNK

REACTIONS (15)
  - Chronic respiratory failure [Unknown]
  - Pleural thickening [Unknown]
  - Hyperthyroidism [Unknown]
  - Large intestine polyp [Unknown]
  - Drug eruption [Unknown]
  - Lipoma [Unknown]
  - Cardiac failure [Unknown]
  - Liver injury [Recovered/Resolved]
  - Colitis ulcerative [Unknown]
  - Pulmonary arterial hypertension [Unknown]
  - Oxygen saturation decreased [Unknown]
  - Therapy change [Unknown]
  - Gastrointestinal disorder [Unknown]
  - N-terminal prohormone brain natriuretic peptide increased [Unknown]
  - Drug effect less than expected [Unknown]

NARRATIVE: CASE EVENT DATE: 20220201
